FAERS Safety Report 11303069 (Version 1)
Quarter: 2015Q3

REPORT INFORMATION
  Report Type: Spontaneous
  Country: US (occurrence: US)
  Receive Date: 20150723
  Receipt Date: 20150723
  Transmission Date: 20151125
  Serious: Yes (Death)
  Sender: FDA-Public Use
  Company Number: US-ASTELLAS-2015US026193

PATIENT
  Age: 86 Year
  Sex: Male

DRUGS (1)
  1. XTANDI [Suspect]
     Active Substance: ENZALUTAMIDE
     Indication: PROSTATE CANCER
     Dosage: 04 DF(CAPSULES), ONCE DAILY
     Route: 065

REACTIONS (3)
  - Decreased appetite [Unknown]
  - Eating disorder [Unknown]
  - Death [Fatal]

NARRATIVE: CASE EVENT DATE: 20150701
